FAERS Safety Report 4872861-3 (Version None)
Quarter: 2005Q4

REPORT INFORMATION
  Report Type: 
  Country: None (occurrence: None)
  Receive Date: 20051201
  Receipt Date: 20050805
  Transmission Date: 20060501
  Serious: No
  Sender: FDA-Public Use
  Company Number: 2005PV000852

PATIENT
  Age: 47 Year
  Sex: Female
  Weight: 110.6777 kg

DRUGS (7)
  1. BYETTA [Suspect]
     Indication: DIABETES MELLITUS NON-INSULIN-DEPENDENT
     Dosage: SEE IMAGE
     Route: 058
     Dates: start: 20050721, end: 20050801
  2. BYETTA [Suspect]
     Indication: DIABETES MELLITUS NON-INSULIN-DEPENDENT
     Dosage: SEE IMAGE
     Route: 058
     Dates: start: 20050802
  3. AVANDIA [Concomitant]
  4. AMARYL [Concomitant]
  5. NOVOLOG MIX 70/30 [Concomitant]
  6. SYNTHROID [Concomitant]
  7. AVALIDE [Concomitant]

REACTIONS (8)
  - DRUG EFFECT DECREASED [None]
  - FATIGUE [None]
  - INJECTION SITE PAIN [None]
  - METRORRHAGIA [None]
  - PRURITUS [None]
  - SOMNOLENCE [None]
  - THERAPEUTIC RESPONSE UNEXPECTED [None]
  - WEIGHT DECREASED [None]
